FAERS Safety Report 20096775 (Version 2)
Quarter: 2021Q4

REPORT INFORMATION
  Report Type: Spontaneous
  Country: US (occurrence: US)
  Receive Date: 20211122
  Receipt Date: 20211129
  Transmission Date: 20220303
  Serious: No
  Sender: FDA-Public Use
  Company Number: US-PFIZER INC-2021628831

PATIENT
  Age: 75 Year
  Sex: Male

DRUGS (2)
  1. BOSULIF [Suspect]
     Active Substance: BOSUTINIB MONOHYDRATE
     Dosage: 400 MG, DAILY (EVERY NIGHT (QPM) FOR YEARS)
  2. FAMOTIDINE [Concomitant]
     Active Substance: FAMOTIDINE
     Dosage: EVERY MORNING (QAM)

REACTIONS (2)
  - Chronic gastritis [Unknown]
  - Enteritis [Unknown]
